FAERS Safety Report 5606612-1 (Version None)
Quarter: 2008Q1

REPORT INFORMATION
  Report Type: 
  Country: None (occurrence: None)
  Receive Date: 20080129
  Receipt Date: 20080121
  Transmission Date: 20080703
  Serious: Yes (Other)
  Sender: FDA-Public Use
  Company Number: ES-ASTRAZENECA-2008AC00254

PATIENT
  Age: 39 Year
  Sex: Male

DRUGS (8)
  1. PROPOFOL [Suspect]
     Indication: SURGERY
     Dosage: 1% 20 ML JER
     Route: 042
     Dates: start: 20071212, end: 20071212
  2. PROPOFOL [Suspect]
     Indication: ANAESTHESIA
     Dosage: 1% 20 ML JER
     Route: 042
     Dates: start: 20071212, end: 20071212
  3. SEVOFLUORANO [Suspect]
     Indication: ANAESTHESIA
     Dates: start: 20071212, end: 20071212
  4. MIDAZOLAM HCL [Suspect]
     Indication: ANAESTHESIA
     Dates: start: 20071212, end: 20071212
  5. CISATRACURIO [Suspect]
     Indication: ANAESTHESIA
     Dates: start: 20071212, end: 20071212
  6. FENTANYL [Suspect]
     Indication: ANAESTHESIA
     Dates: start: 20071212, end: 20071212
  7. CO2 [Suspect]
     Indication: ANAESTHESIA
     Dates: start: 20071212, end: 20071212
  8. SUXAMETONIO [Suspect]
     Indication: ANAESTHESIA
     Dates: start: 20071212, end: 20071212

REACTIONS (1)
  - PRIAPISM [None]
